FAERS Safety Report 10380182 (Version 1)
Quarter: 2014Q3

REPORT INFORMATION
  Report Type: Spontaneous
  Country: DK (occurrence: DK)
  Receive Date: 20140813
  Receipt Date: 20140813
  Transmission Date: 20150326
  Serious: Yes (Other)
  Sender: FDA-Public Use
  Company Number: DK-AMGEN-DNKSP2014060420

PATIENT
  Sex: Male

DRUGS (1)
  1. MIMPARA [Suspect]
     Active Substance: CINACALCET HYDROCHLORIDE
     Indication: RENAL IMPAIRMENT
     Route: 065

REACTIONS (2)
  - Peritoneal dialysis [Unknown]
  - Pacemaker generated arrhythmia [Unknown]
